FAERS Safety Report 7179098-6 (Version None)
Quarter: 2010Q4

REPORT INFORMATION
  Report Type: 
  Country: None (occurrence: None)
  Receive Date: 20101221
  Receipt Date: 20101209
  Transmission Date: 20110411
  Serious: Yes (Other)
  Sender: FDA-Public Use
  Company Number: JP-PFIZER INC-2010163923

PATIENT
  Age: 66 Year
  Sex: Female

DRUGS (4)
  1. CELECOX [Suspect]
     Indication: ARTHRITIS
     Dosage: 100 MG, 2X/DAY
     Route: 048
     Dates: start: 20091213, end: 20100110
  2. CELECOX [Suspect]
     Dosage: UNK
     Route: 048
     Dates: start: 20100204
  3. VITAMIN U [Suspect]
     Indication: NASOPHARYNGITIS
     Dosage: 1 DF, UID/QD
     Route: 048
     Dates: start: 20100111, end: 20100111
  4. TEPRENONE [Concomitant]
     Indication: ARTHRITIS
     Dosage: UNK
     Route: 048
     Dates: start: 20091213, end: 20100204

REACTIONS (3)
  - CROSS SENSITIVITY REACTION [None]
  - ERYTHEMA MULTIFORME [None]
  - LIP OEDEMA [None]
